FAERS Safety Report 11970911 (Version 1)
Quarter: 2016Q1

REPORT INFORMATION
  Report Type: Spontaneous
  Country: US (occurrence: None)
  Receive Date: 20160127
  Receipt Date: 20160127
  Transmission Date: 20160526
  Serious: Yes (Hospitalization, Other)
  Sender: FDA-Public Use
  Company Number: None

PATIENT
  Age: 52 Year
  Sex: Female
  Weight: 68.49 kg

DRUGS (11)
  1. VENTOLIN [Concomitant]
     Active Substance: ALBUTEROL SULFATE
  2. AEROSOL [Concomitant]
  3. APRISO [Concomitant]
     Active Substance: MESALAMINE
  4. NEXIUM [Concomitant]
     Active Substance: ESOMEPRAZOLE MAGNESIUM
  5. PROBIOTIC [Concomitant]
     Active Substance: PROBIOTICS NOS
  6. METROCREAM [Concomitant]
     Active Substance: METRONIDAZOLE
  7. HUMIRA [Concomitant]
     Active Substance: ADALIMUMAB
  8. HUMIRA [Suspect]
     Active Substance: ADALIMUMAB
     Indication: COLITIS ULCERATIVE
     Dosage: 40 MG EVERY 2 WEEKS, SUBCUTANEOUS
     Route: 058
     Dates: start: 20151130, end: 20160113
  9. MESALAMINE. [Concomitant]
     Active Substance: MESALAMINE
  10. LEVOXYL [Concomitant]
     Active Substance: LEVOTHYROXINE SODIUM
  11. SINGULAIR [Concomitant]
     Active Substance: MONTELUKAST SODIUM

REACTIONS (2)
  - Guillain-Barre syndrome [None]
  - Abasia [None]

NARRATIVE: CASE EVENT DATE: 20160122
